FAERS Safety Report 22111839 (Version 5)
Quarter: 2024Q4

REPORT INFORMATION
  Report Type: Report from Study
  Country: US (occurrence: US)
  Receive Date: 20230318
  Receipt Date: 20241007
  Transmission Date: 20250114
  Serious: No
  Sender: NOVARTIS
  Company Number: US-002147023-NVSC2023US058200

PATIENT
  Sex: Female

DRUGS (2)
  1. PIQRAY [Suspect]
     Active Substance: ALPELISIB
     Indication: Breast cancer
     Dosage: 300 MG, QD
     Route: 048
     Dates: start: 202302
  2. PIQRAY [Suspect]
     Active Substance: ALPELISIB
     Dosage: 300 MG (150 MG 2 DOSES), QD
     Route: 048
     Dates: start: 20231002

REACTIONS (3)
  - Rash [Recovered/Resolved]
  - Hyperglycaemia [Unknown]
  - Product dose omission issue [Unknown]
